FAERS Safety Report 5143679-1 (Version None)
Quarter: 2006Q4

REPORT INFORMATION
  Report Type: 
  Country: None (occurrence: None)
  Receive Date: 20061103
  Receipt Date: 20061026
  Transmission Date: 20070319
  Serious: Yes (Hospitalization)
  Sender: FDA-Public Use
  Company Number: NL-ABBOTT-06P-114-0348256-00

PATIENT
  Sex: Female

DRUGS (5)
  1. HUMIRA [Suspect]
     Indication: RHEUMATOID ARTHRITIS
     Route: 058
     Dates: start: 20050801, end: 20050801
  2. HUMIRA [Suspect]
     Dates: start: 20060101
  3. BRUFEN RETARD [Concomitant]
     Indication: DRUG USE FOR UNKNOWN INDICATION
  4. LEVOMIR [Concomitant]
     Indication: DIABETES MELLITUS
     Dates: start: 20030101
  5. NEURAMID [Concomitant]
     Indication: DIABETES MELLITUS
     Dates: start: 20030101

REACTIONS (5)
  - ABSCESS [None]
  - APPENDICITIS [None]
  - APPENDICITIS PERFORATED [None]
  - WOUND DEHISCENCE [None]
  - WOUND INFECTION [None]
